FAERS Safety Report 4962866-6 (Version None)
Quarter: 2006Q2

REPORT INFORMATION
  Report Type: 
  Country: None (occurrence: None)
  Receive Date: 20060403
  Receipt Date: 20060403
  Transmission Date: 20061013
  Serious: Yes (Life-Threatening)
  Sender: FDA-Public Use
  Company Number: None

PATIENT
  Sex: Male
  Weight: 91.173 kg

DRUGS (10)
  1. PACLITAXEL [Suspect]
     Indication: NON-SMALL CELL LUNG CANCER STAGE IV
     Dosage: 400 MG Q 21 IV BOLUS
     Route: 042
     Dates: start: 20050929, end: 20051020
  2. DIPHENHYDRAMINE [Concomitant]
  3. RANITIDINE [Concomitant]
  4. DECADRON [Concomitant]
  5. ZOFRAN [Concomitant]
  6. DOCUSATE [Concomitant]
  7. LACTULOSE [Concomitant]
  8. LORATADINE [Concomitant]
  9. MORPHINE SULFATE [Concomitant]
  10. WARFARIN [Concomitant]

REACTIONS (3)
  - BACK PAIN [None]
  - DYSPNOEA [None]
  - HYPERTENSION [None]
